FAERS Safety Report 12867012 (Version 1)
Quarter: 2016Q4

REPORT INFORMATION
  Report Type: Spontaneous
  Country: US (occurrence: US)
  Receive Date: 20161020
  Receipt Date: 20161020
  Transmission Date: 20170207
  Serious: No
  Sender: FDA-Public Use
  Company Number: US-JAZZ-2016-US-014722

PATIENT
  Sex: Female

DRUGS (37)
  1. XYREM [Suspect]
     Active Substance: SODIUM OXYBATE
     Dosage: 4.5 G, FIRST DOSE
     Route: 048
     Dates: start: 201101, end: 201104
  2. XYREM [Suspect]
     Active Substance: SODIUM OXYBATE
     Dosage: 4.5 G, BID
     Dates: start: 2015
  3. PREDNISONE. [Concomitant]
     Active Substance: PREDNISONE
  4. ESTRACE [Concomitant]
     Active Substance: ESTRADIOL
  5. CEFTIN [Concomitant]
     Active Substance: CEFUROXIME AXETIL
  6. IBUPROFEN. [Concomitant]
     Active Substance: IBUPROFEN
  7. CLARITIN [Concomitant]
     Active Substance: LORATADINE
  8. XYREM [Suspect]
     Active Substance: SODIUM OXYBATE
     Dosage: 4.5 G, BID
     Route: 048
     Dates: start: 201302, end: 2014
  9. MULTIVITAMINS [Concomitant]
     Active Substance: VITAMINS
  10. SPIRONOLACTONE. [Concomitant]
     Active Substance: SPIRONOLACTONE
  11. TYLENOL [Concomitant]
     Active Substance: ACETAMINOPHEN
  12. XYREM [Suspect]
     Active Substance: SODIUM OXYBATE
     Dosage: DOSE ADJUSTMENTS
     Route: 048
     Dates: start: 201211, end: 201302
  13. SINGULAIR [Concomitant]
     Active Substance: MONTELUKAST SODIUM
  14. COMPAZINE [Concomitant]
     Active Substance: PROCHLORPERAZINE MALEATE
  15. PROPRANOLOL [Concomitant]
     Active Substance: PROPRANOLOL\PROPRANOLOL HYDROCHLORIDE
  16. PROTONIX [Concomitant]
     Active Substance: PANTOPRAZOLE SODIUM
  17. PROVIGIL [Concomitant]
     Active Substance: MODAFINIL
  18. XYREM [Suspect]
     Active Substance: SODIUM OXYBATE
     Indication: NARCOLEPSY
     Dosage: 3 G, BID
     Route: 048
     Dates: start: 200812, end: 200901
  19. MECLIZINE [Concomitant]
     Active Substance: MECLIZINE HYDROCHLORIDE
  20. PROPYLTHIOURACIL. [Concomitant]
     Active Substance: PROPYLTHIOURACIL
  21. SEROQUEL [Concomitant]
     Active Substance: QUETIAPINE FUMARATE
  22. XYREM [Suspect]
     Active Substance: SODIUM OXYBATE
     Dosage: 2.25 G, BID
     Route: 048
     Dates: start: 201012, end: 201101
  23. XYREM [Suspect]
     Active Substance: SODIUM OXYBATE
     Dosage: 4.5 G, BID
     Route: 048
     Dates: start: 201104, end: 2011
  24. ADDERALL [Concomitant]
     Active Substance: AMPHETAMINE ASPARTATE\AMPHETAMINE SULFATE\DEXTROAMPHETAMINE SACCHARATE\DEXTROAMPHETAMINE SULFATE
  25. ESTRATEST [Concomitant]
     Active Substance: ESTROGENS, ESTERIFIED\METHYLTESTOSTERONE
  26. XYREM [Suspect]
     Active Substance: SODIUM OXYBATE
     Dosage: 4.5 G, BID
     Route: 048
     Dates: start: 200901, end: 2009
  27. XYREM [Suspect]
     Active Substance: SODIUM OXYBATE
     Dosage: 2.25 G, BID
     Route: 048
     Dates: start: 201210, end: 201211
  28. XYREM [Suspect]
     Active Substance: SODIUM OXYBATE
     Dosage: DOSE ADJUSTMENTS
     Route: 048
     Dates: start: 2015, end: 2015
  29. CLARINEX [Concomitant]
     Active Substance: DESLORATADINE
  30. FLUTICASONE PROPRIONATE [Concomitant]
     Active Substance: FLUTICASONE PROPIONATE
  31. PROVERA [Concomitant]
     Active Substance: MEDROXYPROGESTERONE ACETATE
  32. XYREM [Suspect]
     Active Substance: SODIUM OXYBATE
     Dosage: 2.25 G, SECOND DOSE
     Route: 048
     Dates: start: 201101, end: 201104
  33. XYREM [Suspect]
     Active Substance: SODIUM OXYBATE
     Dosage: 2.25 G, BID
     Route: 048
     Dates: start: 201412, end: 2015
  34. ALBUTEROL. [Concomitant]
     Active Substance: ALBUTEROL
  35. MODAFINIL. [Concomitant]
     Active Substance: MODAFINIL
  36. NUVIGIL [Concomitant]
     Active Substance: ARMODAFINIL
  37. IMITREX [Concomitant]
     Active Substance: SUMATRIPTAN SUCCINATE

REACTIONS (1)
  - Enuresis [Not Recovered/Not Resolved]
